FAERS Safety Report 5938975-1 (Version None)
Quarter: 2008Q4

REPORT INFORMATION
  Report Type: 
  Country: None (occurrence: None)
  Receive Date: 20081103
  Receipt Date: 20081023
  Transmission Date: 20090506
  Serious: Yes (Other)
  Sender: FDA-Public Use
  Company Number: GB-AVENTIS-200815836EU

PATIENT
  Sex: Male

DRUGS (8)
  1. FUROSEMIDE [Suspect]
     Dosage: DOSE: UNK
     Route: 048
  2. ASPIRIN [Concomitant]
  3. CALCICHEW                          /00108001/ [Concomitant]
     Dosage: DOSE: UNK
  4. DIAZEPAM [Concomitant]
     Dosage: DOSE: UNK
  5. EPANUTIN                           /00017402/ [Concomitant]
     Dosage: DOSE: UNK
  6. FOLIC ACID [Concomitant]
     Dosage: DOSE: UNK
  7. MADOPAR                            /00349201/ [Concomitant]
     Dosage: DOSE: UNK
     Route: 048
  8. PERINDOPRIL [Concomitant]
     Route: 048

REACTIONS (1)
  - CARDIAC FLUTTER [None]
